FAERS Safety Report 11190186 (Version 1)
Quarter: 2015Q2

REPORT INFORMATION
  Report Type: Spontaneous
  Country: US (occurrence: None)
  Receive Date: 20150612
  Receipt Date: 20150612
  Transmission Date: 20150821
  Serious: Yes (Hospitalization, Other)
  Sender: FDA-Public Use
  Company Number: None

PATIENT
  Age: 66 Year
  Sex: Female
  Weight: 54.89 kg

DRUGS (13)
  1. VALIUM [Concomitant]
     Active Substance: DIAZEPAM
  2. PHENNERGAN [Concomitant]
  3. LIBRAX [Concomitant]
     Active Substance: CHLORDIAZEPOXIDE HYDROCHLORIDE\CLIDINIUM BROMIDE
  4. DONNATOL [Concomitant]
  5. MULTI-VITAMIN [Concomitant]
     Active Substance: .ALPHA.-TOCOPHEROL ACETATE, DL-\ASCORBIC ACID\CYANOCOBALAMIN\FLUORIDE ION\FOLIC ACID\NIACIN\PYRIDOXINE\RIBOFLAVIN\THIAMINE\VITAMIN A\VITAMIN D
  6. FENTANYL TRANSDERMAL SYSTEM [Concomitant]
     Active Substance: FENTANYL
  7. DILAUDID [Concomitant]
     Active Substance: HYDROMORPHONE HYDROCHLORIDE
  8. LUNESTA [Concomitant]
     Active Substance: ESZOPICLONE
  9. VANCOMYCIN IV 1250 MG [Suspect]
     Active Substance: VANCOMYCIN
     Indication: INTERVERTEBRAL DISCITIS
     Dosage: 1 GM DILUTED
     Route: 042
     Dates: start: 20150426, end: 20150429
  10. SOMA [Concomitant]
     Active Substance: CARISOPRODOL
  11. TUMS [Concomitant]
     Active Substance: CALCIUM CARBONATE
  12. TIZANIDINE (TIZANIDINE) [Concomitant]
     Active Substance: TIZANIDINE
  13. MELATONIN [Concomitant]
     Active Substance: MELATONIN

REACTIONS (6)
  - Nausea [None]
  - Blood creatinine increased [None]
  - Antibiotic level above therapeutic [None]
  - Vomiting [None]
  - Malaise [None]
  - Hypophagia [None]

NARRATIVE: CASE EVENT DATE: 20150429
